FAERS Safety Report 9674010 (Version 2)
Quarter: 2014Q1

REPORT INFORMATION
  Report Type: Spontaneous
  Country: US (occurrence: US)
  Receive Date: 20131106
  Receipt Date: 20140102
  Transmission Date: 20141002
  Serious: No
  Sender: FDA-Public Use
  Company Number: US-AMGEN-USASP2013076079

PATIENT
  Age: 22 Year
  Sex: Female
  Weight: 54.42 kg

DRUGS (4)
  1. ENBREL [Suspect]
     Indication: PSORIASIS
     Dosage: 50 MG, QWK
     Route: 058
     Dates: start: 20111101, end: 20130926
  2. TRANEX [Concomitant]
     Indication: PSORIASIS
     Dosage: UNK UNK, AS NECESSARY
     Route: 061
     Dates: start: 20131016
  3. CLOBEX                             /00337102/ [Concomitant]
     Indication: PSORIASIS
     Dosage: UNK UNK,  SPRAY AS NECESSARY
     Dates: start: 20110920
  4. VECTICAL [Concomitant]
     Dosage: UNK UNK, AS NECESSARY
     Route: 061
     Dates: start: 20101229

REACTIONS (1)
  - Lymphadenopathy [Not Recovered/Not Resolved]
